FAERS Safety Report 13472757 (Version 1)
Quarter: 2017Q2

REPORT INFORMATION
  Report Type: Spontaneous
  Country: US (occurrence: US)
  Receive Date: 20170424
  Receipt Date: 20170424
  Transmission Date: 20170830
  Serious: No
  Sender: FDA-Public Use
  Company Number: None

PATIENT
  Sex: Male
  Weight: 98.1 kg

DRUGS (1)
  1. CIMZIA [Suspect]
     Active Substance: CERTOLIZUMAB PEGOL
     Indication: ANKYLOSING SPONDYLITIS
     Dosage: OTHER FREQUENCY:Q2WEEKS;?
     Route: 058

REACTIONS (7)
  - Injection site reaction [None]
  - Injection site swelling [None]
  - Injection site erythema [None]
  - Injection site bruising [None]
  - Injection site pain [None]
  - Injection site rash [None]
  - Injection site pruritus [None]
